FAERS Safety Report 13823260 (Version 2)
Quarter: 2017Q3

REPORT INFORMATION
  Report Type: Spontaneous
  Country: FR (occurrence: FR)
  Receive Date: 20170802
  Receipt Date: 20170810
  Transmission Date: 20171127
  Serious: Yes (Other)
  Sender: FDA-Public Use
  Company Number: FR-ROCHE-1970396

PATIENT
  Age: 47 Year
  Sex: Female

DRUGS (4)
  1. VALPROIC ACID. [Concomitant]
     Active Substance: VALPROIC ACID
  2. OLANZAPINE. [Concomitant]
     Active Substance: OLANZAPINE
  3. QUETIAPINE. [Concomitant]
     Active Substance: QUETIAPINE
  4. RIVOTRIL [Suspect]
     Active Substance: CLONAZEPAM
     Indication: MANIA
     Route: 042
     Dates: start: 20161027, end: 20161114

REACTIONS (7)
  - Intentional product use issue [Unknown]
  - Confusional state [Unknown]
  - Fall [Unknown]
  - Sedation [Unknown]
  - Trance [Unknown]
  - Amnesia [Unknown]
  - Off label use [Unknown]

NARRATIVE: CASE EVENT DATE: 20161030
